FAERS Safety Report 9403534 (Version 1)
Quarter: 2013Q3

REPORT INFORMATION
  Report Type: Spontaneous
  Country: FR (occurrence: FR)
  Receive Date: 20130716
  Receipt Date: 20130716
  Transmission Date: 20140515
  Serious: Yes (Hospitalization, Other)
  Sender: FDA-Public Use
  Company Number: FR-PFIZER INC-2013203154

PATIENT
  Age: 75 Year
  Sex: Male

DRUGS (11)
  1. NEURONTIN [Suspect]
     Indication: NEURALGIA
     Dosage: 300 MG, 1X/DAY
     Route: 048
     Dates: start: 20130218
  2. NEURONTIN [Suspect]
     Dosage: 1200 MG, 1X/DAY
     Route: 048
     Dates: end: 20130319
  3. ALDACTONE [Concomitant]
  4. AMIODARONE [Concomitant]
  5. RAMIPRIL [Concomitant]
  6. LASILIX [Concomitant]
  7. HEMIGOXINE [Concomitant]
  8. ZOPICLONE [Concomitant]
  9. PREVISCAN [Concomitant]
  10. CARVEDILOL [Concomitant]
     Dosage: 12.5 MG, UNK
  11. PROCORALAN [Concomitant]

REACTIONS (5)
  - Hepatic enzyme increased [Recovered/Resolved]
  - Thrombocytopenia [Recovered/Resolved]
  - Somnolence [Recovered/Resolved]
  - Cognitive disorder [Unknown]
  - Gait disturbance [Unknown]
